FAERS Safety Report 9026677 (Version 2)
Quarter: 2013Q1

REPORT INFORMATION
  Report Type: Spontaneous
  Country: US (occurrence: US)
  Receive Date: 20130123
  Receipt Date: 20130222
  Transmission Date: 20140127
  Serious: Yes (Hospitalization)
  Sender: FDA-Public Use
  Company Number: US-ELI_LILLY_AND_COMPANY-US201212001899

PATIENT
  Sex: Female
  Weight: 57.6 kg

DRUGS (9)
  1. CYMBALTA [Suspect]
     Indication: PAIN
     Dosage: 60 MG, QD
     Route: 048
     Dates: start: 20121026, end: 20121121
  2. FLUOXETINE [Concomitant]
     Dosage: 20 MG, QD
  3. DIGOXIN [Concomitant]
     Dosage: 0.125 MG, UNK
  4. ASPIRIN [Concomitant]
     Dosage: 81 MG, QD
  5. RANITIDINE [Concomitant]
     Dosage: 150 MG, BID
  6. METOPROLOL SUCCINATE [Concomitant]
     Dosage: 50 MG, QD
  7. CRESTOR [Concomitant]
     Dosage: 20 MG, QD
  8. NAPROSYN [Concomitant]
     Dosage: 250 MG, BID
  9. FLAVOXATE [Concomitant]
     Dosage: 300 MG, QD

REACTIONS (5)
  - Aphagia [Recovered/Resolved]
  - Encephalopathy [Recovered/Resolved]
  - Hyperlipidaemia [Recovered/Resolved]
  - Urinary incontinence [Recovered/Resolved]
  - Metabolic function test abnormal [Recovered/Resolved]
